FAERS Safety Report 15853305 (Version 1)
Quarter: 2019Q1

REPORT INFORMATION
  Report Type: Spontaneous
  Country: US (occurrence: US)
  Receive Date: 20190120
  Receipt Date: 20190120
  Transmission Date: 20190417
  Serious: Yes (Other)
  Sender: FDA-Public Use
  Company Number: None

PATIENT
  Age: 44 Year
  Sex: Female
  Weight: 74.7 kg

DRUGS (7)
  1. LEVOTHYROXINE. [Concomitant]
     Active Substance: LEVOTHYROXINE
  2. CIPRO [Suspect]
     Active Substance: CIPROFLOXACIN HYDROCHLORIDE
     Indication: COLITIS
     Dosage: ?          QUANTITY:28 TABLET(S);?
     Route: 048
     Dates: start: 20181217, end: 20181219
  3. ALMODIPINE [Concomitant]
  4. SINGULAIR [Concomitant]
     Active Substance: MONTELUKAST SODIUM
  5. MAXALT [Concomitant]
     Active Substance: RIZATRIPTAN BENZOATE
  6. CERTRIZINE [Concomitant]
  7. FLONASE [Concomitant]
     Active Substance: FLUTICASONE PROPIONATE

REACTIONS (2)
  - Pain in extremity [None]
  - Muscle disorder [None]

NARRATIVE: CASE EVENT DATE: 20181218
